FAERS Safety Report 9930124 (Version 1)
Quarter: 2014Q1

REPORT INFORMATION
  Report Type: Spontaneous
  Country: US (occurrence: US)
  Receive Date: 20140227
  Receipt Date: 20140227
  Transmission Date: 20141002
  Serious: No
  Sender: FDA-Public Use
  Company Number: US-AMGEN-USASP2013069289

PATIENT
  Age: 60 Year
  Sex: Male
  Weight: 65.76 kg

DRUGS (14)
  1. ENBREL [Suspect]
     Indication: PRODUCT USED FOR UNKNOWN INDICATION
     Dosage: 50 MG, QWK
     Route: 058
  2. METHOTREXATE [Concomitant]
     Dosage: 2.5 MG, UNK
     Route: 048
  3. PLAQUENIL                          /00072602/ [Concomitant]
     Dosage: 200 MG, UNK
     Route: 048
  4. FOLIC ACID [Concomitant]
     Dosage: UNK
     Route: 048
  5. ALTACE [Concomitant]
     Dosage: 2.5 MG, UNK
     Route: 048
  6. HUMALOG [Concomitant]
     Dosage: 100/ML, UNK
     Route: 058
  7. PRILOSEC                           /00661201/ [Concomitant]
     Dosage: 10 MG, UNK
     Route: 048
  8. VITAMIN D                          /00107901/ [Concomitant]
     Dosage: 1000 UNIT, UNK
     Route: 048
  9. ESTRADERM [Concomitant]
     Dosage: 0.1 MG, UNK
  10. CALCIUM [Concomitant]
     Dosage: 500 UNK, UNK
     Route: 048
  11. MULTIVITAMINS, PLAIN [Concomitant]
     Dosage: UNK
     Route: 048
  12. SULINDAC [Concomitant]
     Dosage: 150 MG, UNK
     Route: 048
  13. IBUPROFEN [Concomitant]
     Dosage: 200 MG, UNK
     Route: 048
  14. TYLENOL                            /00020001/ [Concomitant]
     Dosage: 325 MG, UNK
     Route: 048

REACTIONS (3)
  - Pain in extremity [Unknown]
  - Erythema [Unknown]
  - Adverse reaction [Unknown]
